FAERS Safety Report 21479269 (Version 3)
Quarter: 2022Q4

REPORT INFORMATION
  Report Type: Spontaneous
  Country: US (occurrence: US)
  Receive Date: 20221019
  Receipt Date: 20221116
  Transmission Date: 20230113
  Serious: No
  Sender: FDA-Public Use
  Company Number: US-SA-SAC20221018001789

PATIENT
  Age: 65 Year
  Sex: Male

DRUGS (3)
  1. DUPIXENT [Suspect]
     Active Substance: DUPILUMAB
     Indication: Psoriasis
     Dosage: 300 MG, QOW
     Route: 058
     Dates: start: 20220726
  2. DUPIXENT [Suspect]
     Active Substance: DUPILUMAB
     Indication: Eczema
  3. DOXEPIN [Concomitant]
     Active Substance: DOXEPIN
     Indication: Pruritus
     Dosage: 10-20 GMS

REACTIONS (7)
  - Psoriasis [Unknown]
  - Burning sensation [Unknown]
  - Skin disorder [Unknown]
  - Pruritus [Unknown]
  - Erythema [Unknown]
  - Rash papular [Unknown]
  - Product use in unapproved indication [Unknown]

NARRATIVE: CASE EVENT DATE: 20220726
